FAERS Safety Report 7135093-4 (Version None)
Quarter: 2010Q4

REPORT INFORMATION
  Report Type: 
  Country: None (occurrence: None)
  Receive Date: 20101203
  Receipt Date: 20101118
  Transmission Date: 20110411
  Serious: Yes (Other)
  Sender: FDA-Public Use
  Company Number: GB-ELI_LILLY_AND_COMPANY-GB201011005991

PATIENT
  Age: 59 Year
  Sex: Male

DRUGS (3)
  1. CYMBALTA [Suspect]
     Indication: DEPRESSION
     Dosage: 60 MG, DAILY (1/D)
  2. ZYPREXA [Concomitant]
     Indication: BIPOLAR I DISORDER
     Dosage: UNK, AS NEEDED
  3. DEPAKOTE [Concomitant]
     Indication: BIPOLAR I DISORDER
     Dosage: 500 MG, 2/D

REACTIONS (3)
  - EXCORIATION [None]
  - HYPERTROPHIC CARDIOMYOPATHY [None]
  - SYNCOPE [None]
